FAERS Safety Report 11671858 (Version 1)
Quarter: 2015Q4

REPORT INFORMATION
  Report Type: Report from Study
  Country: US (occurrence: US)
  Receive Date: 20151028
  Receipt Date: 20151028
  Transmission Date: 20160304
  Serious: No
  Sender: FDA-Public Use
  Company Number: PHEH2015US002074

PATIENT
  Sex: Male

DRUGS (1)
  1. MYFORTIC [Suspect]
     Active Substance: MYCOPHENOLATE SODIUM
     Indication: PRODUCT USED FOR UNKNOWN INDICATION
     Dosage: 720 MG, BID
     Route: 048

REACTIONS (5)
  - Diarrhoea [Unknown]
  - Palpitations [Unknown]
  - Weight decreased [Unknown]
  - Gastrointestinal sounds abnormal [Unknown]
  - Abdominal tenderness [Unknown]
